FAERS Safety Report 10013099 (Version 1)
Quarter: 2014Q1

REPORT INFORMATION
  Report Type: Spontaneous
  Country: US (occurrence: US)
  Receive Date: 20140314
  Receipt Date: 20140314
  Transmission Date: 20141002
  Serious: Yes (Other)
  Sender: FDA-Public Use
  Company Number: US-B.I. PHARMACEUTICALS,INC./RIDGEFIELD-2014-BI-10644BP

PATIENT
  Sex: Female
  Weight: 66 kg

DRUGS (5)
  1. PRADAXA [Suspect]
     Indication: ATRIAL FIBRILLATION
     Dosage: 300 MG
     Route: 048
     Dates: start: 2010
  2. ATENOLOL [Concomitant]
     Dosage: 100 MG
     Route: 048
  3. CHLORTHAL [Concomitant]
     Dosage: 25 MG
     Route: 048
  4. ALENDRONATE [Concomitant]
     Indication: SUPPLEMENTATION THERAPY
     Dosage: 10 MG
     Route: 048
  5. METHOTREXATE [Concomitant]
     Indication: PSORIASIS
     Dosage: 0.7143 MG
     Route: 048

REACTIONS (1)
  - Breast cancer [Recovered/Resolved]
